FAERS Safety Report 10376144 (Version 1)
Quarter: 2014Q3

REPORT INFORMATION
  Report Type: Spontaneous
  Country: US (occurrence: US)
  Receive Date: 20140811
  Receipt Date: 20140811
  Transmission Date: 20150326
  Serious: No
  Sender: FDA-Public Use
  Company Number: US-ASTRAZENECA-2014SE07860

PATIENT
  Age: 49 Year
  Sex: Female

DRUGS (3)
  1. TAMOXIFEN [Suspect]
     Active Substance: TAMOXIFEN
     Route: 048
     Dates: end: 201312
  2. GABAPENTIN. [Concomitant]
     Active Substance: GABAPENTIN
  3. ARIMIDEX [Suspect]
     Active Substance: ANASTROZOLE
     Indication: BREAST CANCER
     Dosage: NR
     Route: 048
     Dates: start: 201312

REACTIONS (7)
  - Weight increased [Unknown]
  - Asthenia [Unknown]
  - Decreased interest [Unknown]
  - Arthralgia [Unknown]
  - Myalgia [Unknown]
  - Fatigue [Unknown]
  - Alopecia [Unknown]
